FAERS Safety Report 9350643 (Version 1)
Quarter: 2013Q2

REPORT INFORMATION
  Report Type: Spontaneous
  Country: US (occurrence: None)
  Receive Date: 20130613
  Receipt Date: 20130613
  Transmission Date: 20140414
  Serious: Yes (Life-Threatening, Hospitalization)
  Sender: FDA-Public Use
  Company Number: None

PATIENT
  Age: 54 Year
  Sex: Male
  Weight: 149 kg

DRUGS (1)
  1. SOMATULINE DEPOT [Suspect]
     Indication: ACROMEGALY
     Dosage: 1 DOSE 90 MG EVERY 4 WEEKS SQ
     Route: 058

REACTIONS (3)
  - Throat tightness [None]
  - Dyspnoea [None]
  - Ill-defined disorder [None]
